FAERS Safety Report 8280706-7 (Version None)
Quarter: 2012Q2

REPORT INFORMATION
  Report Type: 
  Country: None (occurrence: None)
  Receive Date: 20120412
  Receipt Date: 20120123
  Transmission Date: 20120825
  Serious: Yes (Hospitalization)
  Sender: FDA-Public Use
  Company Number: US-ASTRAZENECA-2011SE48482

PATIENT
  Age: 55 Year
  Sex: Female

DRUGS (2)
  1. NEXIUM [Suspect]
     Route: 048
  2. METFORMIN HCL [Suspect]
     Route: 065

REACTIONS (6)
  - FIBROMYALGIA [None]
  - NAUSEA [None]
  - MALAISE [None]
  - VOMITING [None]
  - DIABETES MELLITUS [None]
  - BLOOD POTASSIUM DECREASED [None]
